FAERS Safety Report 10962456 (Version 1)
Quarter: 2015Q1

REPORT INFORMATION
  Report Type: Spontaneous
  Country: FR (occurrence: FR)
  Receive Date: 20150327
  Receipt Date: 20150327
  Transmission Date: 20150721
  Serious: Yes (Other)
  Sender: FDA-Public Use
  Company Number: FR-GLAXOSMITHKLINE-FR2015GSK038211

PATIENT
  Age: 67 Year
  Sex: Female

DRUGS (8)
  1. FILGRASTIM [Suspect]
     Active Substance: FILGRASTIM
     Indication: NEUTROPENIA
     Dosage: 30 UNK, QD
     Route: 042
     Dates: start: 20150101, end: 20150107
  2. DOLIPRANE [Concomitant]
     Active Substance: ACETAMINOPHEN
     Dosage: UNK
  3. LEVOCETIRIZINE [Concomitant]
     Active Substance: LEVOCETIRIZINE
     Indication: PRURITUS
     Dosage: 5 MG, UNK
     Dates: start: 20150114
  4. ZOPHREN [Suspect]
     Active Substance: ONDANSETRON
     Indication: ANTIEMETIC SUPPORTIVE CARE
     Dosage: 8 MG, QD
     Route: 048
     Dates: start: 20141224, end: 20141231
  5. PREDNISONE. [Concomitant]
     Active Substance: PREDNISONE
     Dosage: 70 MG, QD
     Dates: start: 20150114
  6. LYSANXIA [Concomitant]
     Active Substance: PRAZEPAM
     Dosage: 0.5 UNK, UNK
  7. HALAVEN [Suspect]
     Active Substance: ERIBULIN MESYLATE
     Indication: BREAST CANCER METASTATIC
     Dosage: 2.15 MG, QD
     Route: 042
     Dates: start: 20141224, end: 20141231
  8. LODOZ [Concomitant]
     Active Substance: BISOPROLOL FUMARATE\HYDROCHLOROTHIAZIDE
     Dosage: 1 UNK, QD

REACTIONS (1)
  - Hepatitis cholestatic [Recovering/Resolving]

NARRATIVE: CASE EVENT DATE: 20150112
